FAERS Safety Report 4994751-8 (Version None)
Quarter: 2006Q1

REPORT INFORMATION
  Report Type: 
  Country: None (occurrence: None)
  Receive Date: 20060313
  Receipt Date: 20050426
  Transmission Date: 20060701
  Serious: Yes (Other)
  Sender: FDA-Public Use
  Company Number: PHEH2005US04788

PATIENT
  Age: 72 Year
  Sex: Male

DRUGS (1)
  1. TRILEPTAL [Suspect]
     Indication: TRIGEMINAL NEURALGIA
     Dosage: 300 MG,BID
     Dates: start: 20050307, end: 20050321

REACTIONS (1)
  - FAECES DISCOLOURED [None]
